FAERS Safety Report 25571345 (Version 1)
Quarter: 2025Q3

REPORT INFORMATION
  Report Type: Spontaneous
  Country: US (occurrence: US)
  Receive Date: 20250717
  Receipt Date: 20250717
  Transmission Date: 20251021
  Serious: Yes (Other)
  Sender: MACLEODS
  Company Number: US-MACLEODS PHARMA-MAC2025053698

PATIENT

DRUGS (12)
  1. OLANZAPINE [Suspect]
     Active Substance: OLANZAPINE
     Indication: Schizophrenia
     Dosage: QHS
     Route: 065
     Dates: start: 201503, end: 201503
  2. OLANZAPINE [Suspect]
     Active Substance: OLANZAPINE
     Dosage: QHS
     Route: 065
     Dates: start: 201505, end: 201507
  3. OLANZAPINE [Suspect]
     Active Substance: OLANZAPINE
     Dosage: QHS DOSE INCREASED FOR EFFICACY
     Route: 065
     Dates: start: 201507, end: 202012
  4. OLANZAPINE [Suspect]
     Active Substance: OLANZAPINE
     Dosage: 30 MG QHS
     Route: 065
     Dates: start: 202108
  5. OLANZAPINE [Suspect]
     Active Substance: OLANZAPINE
     Dosage: 30 MG QHS
     Route: 065
     Dates: start: 202204, end: 202205
  6. OLANZAPINE [Suspect]
     Active Substance: OLANZAPINE
     Route: 065
     Dates: start: 202205, end: 202212
  7. OLANZAPINE [Suspect]
     Active Substance: OLANZAPINE
     Dosage: 30 MG QHS
     Route: 065
     Dates: start: 202212, end: 202304
  8. OLANZAPINE [Suspect]
     Active Substance: OLANZAPINE
     Dosage: 15 MG QHS
     Route: 065
     Dates: start: 202304, end: 202306
  9. OLANZAPINE [Suspect]
     Active Substance: OLANZAPINE
     Route: 065
     Dates: start: 202308
  10. OLANZAPINE\SAMIDORPHAN [Suspect]
     Active Substance: OLANZAPINE\SAMIDORPHAN
     Indication: Schizophrenia
     Dosage: COMBINATION OLANZAPINE 15MG/SAMIDORPHAN10MG QHS
     Route: 065
     Dates: start: 202205, end: 202212
  11. OLANZAPINE\SAMIDORPHAN [Suspect]
     Active Substance: OLANZAPINE\SAMIDORPHAN
     Dosage: COMBINATION OLANZAPINE 15MG/SAMIDORPHAN10MG QHS
     Route: 065
     Dates: start: 202304, end: 202306
  12. QUETIAPINE [Concomitant]
     Active Substance: QUETIAPINE
     Indication: Schizophrenia
     Route: 065
     Dates: start: 201503, end: 201503

REACTIONS (7)
  - Weight increased [Recovering/Resolving]
  - Condition aggravated [Recovering/Resolving]
  - Glucose tolerance impaired [Unknown]
  - Sleep apnoea syndrome [Unknown]
  - Blood cholesterol increased [Recovered/Resolved]
  - Blood triglycerides increased [Recovered/Resolved]
  - Hypertension [Unknown]

NARRATIVE: CASE EVENT DATE: 20150101
